FAERS Safety Report 4405455-4 (Version None)
Quarter: 2004Q3

REPORT INFORMATION
  Report Type: 
  Country: None (occurrence: None)
  Receive Date: 20040723
  Receipt Date: 20030829
  Transmission Date: 20050211
  Serious: No
  Sender: FDA-Public Use
  Company Number: US-GLAXOSMITHKLINE-A0424135A

PATIENT
  Age: 77 Year
  Sex: Female

DRUGS (9)
  1. AVANDIA [Suspect]
     Dosage: 4MG PER DAY
     Route: 048
     Dates: start: 20030823
  2. LIPITOR [Concomitant]
  3. KLOR-CON [Concomitant]
  4. ADALAT [Concomitant]
  5. HYZAAR [Concomitant]
  6. ASPIRIN [Concomitant]
  7. REMERON [Concomitant]
  8. CENTRUM VITAMIN [Concomitant]
  9. LORAZEPAM [Concomitant]

REACTIONS (4)
  - ANXIETY [None]
  - DEPRESSED MOOD [None]
  - INSOMNIA [None]
  - SPEECH DISORDER [None]
